FAERS Safety Report 10184693 (Version 1)
Quarter: 2014Q2

REPORT INFORMATION
  Report Type: Spontaneous
  Country: BG (occurrence: BG)
  Receive Date: 20140521
  Receipt Date: 20140521
  Transmission Date: 20141212
  Serious: Yes (Hospitalization)
  Sender: FDA-Public Use
  Company Number: BG-JNJFOC-20140507873

PATIENT
  Age: 79 Year
  Sex: Female
  Weight: 80 kg

DRUGS (4)
  1. XARELTO [Suspect]
     Indication: ATRIAL FIBRILLATION
     Route: 048
     Dates: start: 201404, end: 20140509
  2. XARELTO [Suspect]
     Indication: CEREBROVASCULAR ACCIDENT PROPHYLAXIS
     Route: 048
     Dates: start: 201404, end: 20140509
  3. TWYNSTA [Concomitant]
     Dosage: 80/5
     Route: 065
  4. DIGOXIN [Concomitant]
     Route: 065

REACTIONS (2)
  - Bradyarrhythmia [Recovering/Resolving]
  - Blood creatinine increased [Recovering/Resolving]
